FAERS Safety Report 13002159 (Version 2)
Quarter: 2016Q4

REPORT INFORMATION
  Report Type: Report from Study
  Country: CA (occurrence: CA)
  Receive Date: 20161206
  Receipt Date: 20161206
  Transmission Date: 20170207
  Serious: Yes (Other)
  Sender: FDA-Public Use
  Company Number: CA-HLSUS-2016-CA-000273

PATIENT
  Age: 33 Year
  Sex: Male
  Weight: 82 kg

DRUGS (6)
  1. GLUCOPHAGE [Concomitant]
     Active Substance: METFORMIN HYDROCHLORIDE
     Indication: WEIGHT INCREASED
     Dosage: 2000 MG
     Route: 048
  2. ABILIFY MAINTENA [Concomitant]
     Active Substance: ARIPIPRAZOLE
     Indication: SCHIZOPHRENIA
     Dosage: 400 MG
     Route: 030
  3. VALPROIC ACID. [Concomitant]
     Active Substance: VALPROIC ACID
     Dosage: 1000 MG DAILY
     Route: 048
  4. CLOZARIL [Suspect]
     Active Substance: CLOZAPINE
     Indication: SCHIZOPHRENIA
     Dosage: 500 MG
     Route: 048
     Dates: start: 2007
  5. LIPIDIL SUPRA [Concomitant]
     Indication: LIPIDS INCREASED
     Dosage: 160 MG
     Route: 048
  6. PANTOLOC [Concomitant]
     Active Substance: PANTOPRAZOLE SODIUM
     Indication: GASTROOESOPHAGEAL REFLUX DISEASE
     Route: 048

REACTIONS (1)
  - Gastroenteritis [Unknown]
